FAERS Safety Report 11335685 (Version 1)
Quarter: 2015Q3

REPORT INFORMATION
  Report Type: Spontaneous
  Country: BR (occurrence: BR)
  Receive Date: 20150804
  Receipt Date: 20150804
  Transmission Date: 20151125
  Serious: Yes (Other)
  Sender: FDA-Public Use
  Company Number: BR-PFIZER INC-2015253134

PATIENT
  Age: 51 Year
  Sex: Female
  Weight: 64 kg

DRUGS (4)
  1. FRONTAL XR [Interacting]
     Active Substance: ALPRAZOLAM
     Indication: ANXIETY
  2. PRISTIQ EXTENDED RELEASE [Suspect]
     Active Substance: DESVENLAFAXINE SUCCINATE
     Indication: DEPRESSION
     Dosage: 100 MG, DAILY
     Route: 048
     Dates: start: 201411
  3. FRONTAL XR [Interacting]
     Active Substance: ALPRAZOLAM
     Indication: INSOMNIA
     Dosage: 1 MG, 1X/DAY (AT NIGHT)
     Route: 048
  4. FRONTAL XR [Interacting]
     Active Substance: ALPRAZOLAM
     Indication: ANXIETY
     Dosage: 2 MG, DAILY
     Route: 048
     Dates: start: 201411

REACTIONS (6)
  - Drug interaction [Unknown]
  - Dysstasia [Unknown]
  - Activities of daily living impaired [Unknown]
  - Panic reaction [Unknown]
  - Syncope [Unknown]
  - Dengue fever [Unknown]

NARRATIVE: CASE EVENT DATE: 2015
